FAERS Safety Report 16706109 (Version 1)
Quarter: 2019Q3

REPORT INFORMATION
  Report Type: Spontaneous
  Country: US (occurrence: US)
  Receive Date: 20190628
  Receipt Date: 20190628
  Transmission Date: 20191004
  Serious: Yes (Hospitalization)
  Sender: FDA-Public Use
  Company Number: None

PATIENT
  Age: 87 Year
  Sex: Male
  Weight: 70 kg

DRUGS (2)
  1. LEUPROLIDE ACETATE. [Suspect]
     Active Substance: LEUPROLIDE ACETATE
     Dates: end: 20190409
  2. CASODEX [Suspect]
     Active Substance: BICALUTAMIDE
     Dates: end: 20190409

REACTIONS (6)
  - Fall [None]
  - Subdural haematoma [None]
  - Urinary tract infection [None]
  - Cerebral infarction [None]
  - Facial bones fracture [None]
  - Spinal osteoarthritis [None]

NARRATIVE: CASE EVENT DATE: 20190410
